FAERS Safety Report 24130193 (Version 1)
Quarter: 2024Q3

REPORT INFORMATION
  Report Type: Spontaneous
  Country: FR (occurrence: FR)
  Receive Date: 20240724
  Receipt Date: 20240724
  Transmission Date: 20241017
  Serious: Yes (Hospitalization, Other)
  Sender: SANDOZ
  Company Number: FR-AMGEN-FRASP2024137451

PATIENT
  Age: 67 Year
  Sex: Male

DRUGS (1)
  1. ADALIMUMAB [Suspect]
     Active Substance: ADALIMUMAB\ISOPROPYL ALCOHOL
     Indication: Crohn^s disease
     Dosage: UNK
     Route: 065

REACTIONS (9)
  - Arthritis reactive [Unknown]
  - Rectal ulcer [Unknown]
  - Rectal stenosis [Unknown]
  - Anogenital dysplasia [Unknown]
  - Gonococcal infection [Unknown]
  - Lymphogranuloma venereum [Unknown]
  - Anal incontinence [Unknown]
  - Papilloma viral infection [Unknown]
  - Drug ineffective [Unknown]
